FAERS Safety Report 4433804-X (Version None)
Quarter: 2004Q3

REPORT INFORMATION
  Report Type: 
  Country: None (occurrence: None)
  Receive Date: 20040826
  Receipt Date: 20020906
  Transmission Date: 20050211
  Serious: Yes (Life-Threatening, Hospitalization, Disabling)
  Sender: FDA-Public Use
  Company Number: GB-ROCHE-320855

PATIENT
  Age: 55 Year
  Sex: Female
  Weight: 66 kg

DRUGS (7)
  1. XENICAL [Suspect]
     Indication: OBESITY
     Route: 048
     Dates: start: 20020415, end: 20020515
  2. ELLESTE DUET CONTI [Suspect]
     Indication: HORMONE REPLACEMENT THERAPY
     Route: 065
  3. GINKGO BILOBA [Concomitant]
  4. GINSENG [Concomitant]
  5. CALCIUM SUPPLEMENT [Concomitant]
  6. ZINC SUPPLEMENT [Concomitant]
  7. HORMONE REPLACEMENT THERAPY [Concomitant]

REACTIONS (15)
  - ABDOMINAL PAIN [None]
  - ALANINE AMINOTRANSFERASE ABNORMAL [None]
  - CHOLECYSTITIS [None]
  - CHOLESTASIS [None]
  - CIRCULATORY COLLAPSE [None]
  - COAGULOPATHY [None]
  - HEPATIC CIRRHOSIS [None]
  - HEPATIC FAILURE [None]
  - HEPATIC NECROSIS [None]
  - HEPATITIS [None]
  - INCONTINENCE [None]
  - LIVER DISORDER [None]
  - NEUROPATHY [None]
  - PORTAL HYPERTENSION [None]
  - VARICOSE VEIN [None]
